FAERS Safety Report 7045889-5 (Version None)
Quarter: 2010Q4

REPORT INFORMATION
  Report Type: 
  Country: None (occurrence: None)
  Receive Date: 20101014
  Receipt Date: 20101001
  Transmission Date: 20110411
  Serious: Yes (Hospitalization, Other)
  Sender: FDA-Public Use
  Company Number: PHHY2010JP43133

PATIENT
  Sex: Male

DRUGS (9)
  1. ZOMETA [Suspect]
     Indication: HYPERCALCAEMIA OF MALIGNANCY
     Dosage: 4 MG PER ADMINISTRATION
     Route: 041
     Dates: start: 20090217
  2. ETHINYL ESTRADIOL [Concomitant]
     Indication: PROSTATE CANCER
     Dosage: 1.5 MG
     Route: 048
     Dates: start: 20090204, end: 20090303
  3. BUFFERIN [Concomitant]
     Indication: ANTICOAGULANT THERAPY
     Dosage: 81 MG
     Route: 048
     Dates: start: 20090204, end: 20090303
  4. MOBIC [Concomitant]
     Indication: CANCER PAIN
     Dosage: 5 MG
     Route: 048
     Dates: start: 20090204, end: 20090313
  5. MOBIC [Concomitant]
     Dosage: 5 MG
     Route: 048
  6. GASTER D [Concomitant]
     Indication: REFLUX OESOPHAGITIS
     Dosage: 20 MG
     Route: 048
     Dates: start: 20090130, end: 20090303
  7. ZYLORIC [Concomitant]
     Indication: HYPERURICAEMIA
     Dosage: 50 MG
     Route: 048
     Dates: start: 20090212, end: 20090303
  8. NORVASC [Concomitant]
     Indication: HYPERTENSION
     Dosage: 5 MG
     Route: 048
     Dates: start: 20081129, end: 20100313
  9. GASTER [Concomitant]
     Indication: REFLUX OESOPHAGITIS
     Dosage: 10 MG
     Route: 048
     Dates: start: 20090315, end: 20100313

REACTIONS (5)
  - ALANINE AMINOTRANSFERASE INCREASED [None]
  - ASPARTATE AMINOTRANSFERASE INCREASED [None]
  - BLOOD ALKALINE PHOSPHATASE INCREASED [None]
  - DECREASED APPETITE [None]
  - RENAL FAILURE ACUTE [None]
